FAERS Safety Report 6946440-8 (Version None)
Quarter: 2010Q3

REPORT INFORMATION
  Report Type: 
  Country: None (occurrence: None)
  Receive Date: 20100827
  Receipt Date: 20090729
  Transmission Date: 20110219
  Serious: No
  Sender: FDA-Public Use
  Company Number: US-ABBOTT-09P-163-0587042-00

PATIENT
  Sex: Female
  Weight: 81.72 kg

DRUGS (5)
  1. NIASPAN [Suspect]
     Indication: BLOOD CHOLESTEROL INCREASED
     Route: 048
     Dates: start: 20090601, end: 20090701
  2. NIASPAN [Suspect]
     Route: 048
     Dates: start: 20090701, end: 20090701
  3. NIASPAN [Suspect]
     Route: 048
     Dates: start: 20090701
  4. SYNTHROID [Concomitant]
     Indication: HYPOTHYROIDISM
  5. ASPIRIN [Concomitant]
     Indication: PROPHYLAXIS
     Dates: start: 20090601, end: 20090701

REACTIONS (2)
  - FLUSHING [None]
  - HEADACHE [None]
